FAERS Safety Report 10846533 (Version 1)
Quarter: 2015Q1

REPORT INFORMATION
  Report Type: Report from Study
  Country: US (occurrence: US)
  Receive Date: 20150220
  Receipt Date: 20150220
  Transmission Date: 20150721
  Serious: Yes (Hospitalization, Other)
  Sender: FDA-Public Use
  Company Number: US-ABBVIE-15P-163-1336863-00

PATIENT
  Age: 36 Year
  Sex: Female
  Weight: 103.06 kg

DRUGS (9)
  1. LUPRON DEPOT [Suspect]
     Active Substance: LEUPROLIDE ACETATE
     Indication: ENDOMETRIOSIS
  2. LUPANETA PACK [Suspect]
     Active Substance: ISOPROPYL ALCOHOL\LEUPROLIDE ACETATE\NORETHINDRONE ACETATE
     Indication: UTERINE LEIOMYOMA
     Route: 065
     Dates: start: 20150126
  3. GENERIC ORTHO-NOVUM [Concomitant]
     Indication: PRODUCT USED FOR UNKNOWN INDICATION
     Dosage: 1/35 TABLETS
     Route: 065
     Dates: start: 201401, end: 201406
  4. MULTIVITAMIN [Concomitant]
     Active Substance: VITAMINS
     Indication: PRODUCT USED FOR UNKNOWN INDICATION
  5. LUPRON DEPOT [Suspect]
     Active Substance: LEUPROLIDE ACETATE
     Indication: MENORRHAGIA
  6. LUPANETA PACK [Suspect]
     Active Substance: ISOPROPYL ALCOHOL\LEUPROLIDE ACETATE\NORETHINDRONE ACETATE
     Indication: UTERINE LEIOMYOMA
     Route: 048
     Dates: start: 20150126
  7. MEGACE [Concomitant]
     Active Substance: MEGESTROL ACETATE
     Indication: PRODUCT USED FOR UNKNOWN INDICATION
     Route: 065
     Dates: start: 201406
  8. LUPRON DEPOT [Suspect]
     Active Substance: LEUPROLIDE ACETATE
     Indication: UTERINE LEIOMYOMA
     Route: 065
     Dates: start: 2009, end: 201401
  9. MORTIN [Concomitant]
     Indication: PRODUCT USED FOR UNKNOWN INDICATION

REACTIONS (19)
  - Menstruation normal [Unknown]
  - Menorrhagia [Unknown]
  - Hot flush [Unknown]
  - Night sweats [Unknown]
  - Anaemia [Not Recovered/Not Resolved]
  - Menorrhagia [Unknown]
  - Pain in extremity [Unknown]
  - Vaginal haemorrhage [Not Recovered/Not Resolved]
  - Abdominal pain [Unknown]
  - Dyspnoea exertional [Unknown]
  - Loss of consciousness [Recovered/Resolved]
  - Deep vein thrombosis [Unknown]
  - Fatigue [Unknown]
  - Muscle spasms [Unknown]
  - Menorrhagia [Unknown]
  - Dysmenorrhoea [Unknown]
  - Constipation [Unknown]
  - Anaemia [Unknown]
  - Uterine leiomyoma [Not Recovered/Not Resolved]

NARRATIVE: CASE EVENT DATE: 201404
